FAERS Safety Report 22831199 (Version 3)
Quarter: 2023Q4

REPORT INFORMATION
  Report Type: Report from Study
  Country: CN (occurrence: None)
  Receive Date: 20230817
  Receipt Date: 20231031
  Transmission Date: 20240109
  Serious: Yes (Hospitalization)
  Sender: FDA-Public Use
  Company Number: CN-ROCHE-3404239

PATIENT
  Sex: Male

DRUGS (12)
  1. ATEZOLIZUMAB [Suspect]
     Active Substance: ATEZOLIZUMAB
     Indication: Hepatocellular carcinoma
     Route: 041
     Dates: start: 20230207, end: 20230207
  2. ATEZOLIZUMAB [Suspect]
     Active Substance: ATEZOLIZUMAB
     Route: 041
     Dates: start: 20230228, end: 20230228
  3. ATEZOLIZUMAB [Suspect]
     Active Substance: ATEZOLIZUMAB
     Route: 041
     Dates: start: 20230323, end: 20230323
  4. ATEZOLIZUMAB [Suspect]
     Active Substance: ATEZOLIZUMAB
     Route: 041
     Dates: start: 20230426, end: 20230426
  5. BEVACIZUMAB [Suspect]
     Active Substance: BEVACIZUMAB
     Indication: Hepatocellular carcinoma
     Route: 041
     Dates: start: 20230207, end: 20230207
  6. BEVACIZUMAB [Suspect]
     Active Substance: BEVACIZUMAB
     Route: 041
     Dates: start: 20230228, end: 20230228
  7. BEVACIZUMAB [Suspect]
     Active Substance: BEVACIZUMAB
     Route: 041
     Dates: start: 20230323, end: 20230323
  8. ENTECAVIR [Concomitant]
     Active Substance: ENTECAVIR
     Indication: Chronic hepatitis B
     Dosage: DISPERSIBLE TABLETS
     Route: 048
     Dates: start: 20230117
  9. L-GLUTAMINE AND SODIUM GUALENATE [Concomitant]
     Indication: Chronic gastritis
     Dates: start: 20230207, end: 20230221
  10. LEUCOGEN TABLETS [Concomitant]
     Indication: White blood cell count decreased
     Route: 048
     Dates: start: 20230207, end: 20230222
  11. LEUCOGEN TABLETS [Concomitant]
     Indication: Neutrophil count decreased
     Route: 048
     Dates: start: 20230228, end: 20230319
  12. PANTOPRAZOLE SODIUM [Concomitant]
     Active Substance: PANTOPRAZOLE SODIUM
     Indication: Chronic gastritis
     Route: 048
     Dates: start: 20230205, end: 20230301

REACTIONS (9)
  - Oesophageal varices haemorrhage [Recovered/Resolved]
  - Neutrophil count decreased [Recovered/Resolved]
  - Blood corticotrophin abnormal [Recovered/Resolved]
  - Pyrexia [Recovered/Resolved]
  - Gingival bleeding [Not Recovered/Not Resolved]
  - White blood cell count decreased [Not Recovered/Not Resolved]
  - Platelet count decreased [Not Recovered/Not Resolved]
  - Epistaxis [Not Recovered/Not Resolved]
  - Neutrophil count decreased [Not Recovered/Not Resolved]

NARRATIVE: CASE EVENT DATE: 20230218
